FAERS Safety Report 11844693 (Version 3)
Quarter: 2017Q3

REPORT INFORMATION
  Report Type: Spontaneous
  Country: US (occurrence: US)
  Receive Date: 20151217
  Receipt Date: 20170721
  Transmission Date: 20171127
  Serious: Yes (Death, Life-Threatening, Other)
  Sender: FDA-Public Use
  Company Number: US-PURDUE-USA-2015-0127978

PATIENT
  Age: 0 Year
  Sex: Male
  Weight: 3.58 kg

DRUGS (3)
  1. METHAMPHETAMINE [Suspect]
     Active Substance: METHAMPHETAMINE
     Indication: PRODUCT USED FOR UNKNOWN INDICATION
     Route: 064
  2. PROZAC [Suspect]
     Active Substance: FLUOXETINE HYDROCHLORIDE
     Indication: PRODUCT USED FOR UNKNOWN INDICATION
     Route: 064
  3. HYDROCODONE BITARTRATE (SIMILAR TO NDA 206627) [Suspect]
     Active Substance: HYDROCODONE BITARTRATE
     Indication: PRODUCT USED FOR UNKNOWN INDICATION
     Dosage: UNK
     Route: 064

REACTIONS (13)
  - Acute myocardial infarction [Unknown]
  - Pneumonia [Not Recovered/Not Resolved]
  - Drug withdrawal syndrome neonatal [Unknown]
  - Foetal exposure during pregnancy [Recovered/Resolved]
  - Pain [Unknown]
  - Hypoxic-ischaemic encephalopathy [Fatal]
  - Asphyxia [Not Recovered/Not Resolved]
  - Cardio-respiratory arrest [Recovered/Resolved]
  - Agitation neonatal [Unknown]
  - Brain oedema [Not Recovered/Not Resolved]
  - Exposure during breast feeding [Unknown]
  - Unresponsive to stimuli [Not Recovered/Not Resolved]
  - Bed sharing [Unknown]

NARRATIVE: CASE EVENT DATE: 201406
